FAERS Safety Report 9120223 (Version 2)
Quarter: 2013Q3

REPORT INFORMATION
  Report Type: Spontaneous
  Country: US (occurrence: US)
  Receive Date: 20130226
  Receipt Date: 20130703
  Transmission Date: 20140515
  Serious: Yes (Other)
  Sender: FDA-Public Use
  Company Number: US-ASTELLAS-2013US001795

PATIENT
  Age: 51 Year
  Sex: Male

DRUGS (23)
  1. PROGRAF [Suspect]
     Indication: LIVER TRANSPLANT
     Dosage: 2 MG, Q12 HOURS
     Route: 065
     Dates: start: 20130420
  2. PROGRAF [Suspect]
     Dosage: 0.5 MG, UID/QD
     Route: 048
     Dates: start: 20130429
  3. CHLORHEXIDINE GLUCONATE [Concomitant]
     Indication: PRODUCT USED FOR UNKNOWN INDICATION
     Dosage: 15 ML, BID
     Route: 065
  4. CYTOVENE                           /00784201/ [Concomitant]
     Indication: PRODUCT USED FOR UNKNOWN INDICATION
     Dosage: 2.5 MG/KG, QHS
     Route: 042
  5. HEPARIN [Concomitant]
     Indication: PRODUCT USED FOR UNKNOWN INDICATION
     Dosage: 1500 U, AFTER DIALYSIS
     Route: 065
  6. METHYLPREDNISOLONE [Concomitant]
     Indication: PRODUCT USED FOR UNKNOWN INDICATION
     Dosage: 40 MG, Q6 HOURS
     Route: 065
  7. METHYLPREDNISOLONE [Concomitant]
     Dosage: 30 MG, Q6 HOURS
     Route: 065
  8. METHYLPREDNISOLONE [Concomitant]
     Dosage: 20 MG, Q6 HOURS
     Route: 065
  9. METHYLPREDNISOLONE [Concomitant]
     Dosage: 20 MG, Q12 HOURS
  10. METHYLPREDNISOLONE [Concomitant]
     Dosage: 20 MG, UID/QD
     Route: 065
  11. NYSTATIN [Concomitant]
     Indication: PRODUCT USED FOR UNKNOWN INDICATION
     Dosage: 5 ML, UID/QD
     Route: 065
  12. NYSTATIN [Concomitant]
     Dosage: 5 ML, TID AFTER MEALS AND BEDTIME
     Route: 065
  13. PANTOPRAZOLE [Concomitant]
     Indication: PRODUCT USED FOR UNKNOWN INDICATION
     Dosage: 40 MG, UID/QD
     Route: 065
  14. SULFAMETHOXAZOLE AND TRIMETHOPRIM [Concomitant]
     Indication: PRODUCT USED FOR UNKNOWN INDICATION
     Dosage: 1 DF, SET TIMES/DAYS
  15. AMINOCAPROIC ACID [Concomitant]
     Indication: PRODUCT USED FOR UNKNOWN INDICATION
     Dosage: 1 G/HOUR
     Route: 065
  16. SUBLIMAZE                          /00174601/ [Concomitant]
     Indication: PRODUCT USED FOR UNKNOWN INDICATION
     Dosage: 25 UG/HOUR
  17. INSULIN REGULAR                    /01223201/ [Concomitant]
     Indication: PRODUCT USED FOR UNKNOWN INDICATION
     Dosage: 3 U/HOUR
     Route: 065
  18. LACTATED RINGERS [Concomitant]
     Indication: PRODUCT USED FOR UNKNOWN INDICATION
     Dosage: 50 ML/HOUR
     Route: 065
  19. PROPOFOL [Concomitant]
     Indication: PRODUCT USED FOR UNKNOWN INDICATION
     Dosage: UNK
     Route: 065
     Dates: end: 20130420
  20. CREON [Concomitant]
     Indication: PRODUCT USED FOR UNKNOWN INDICATION
     Dosage: UNK
     Route: 048
  21. LOPERAMIDE [Concomitant]
     Indication: PRODUCT USED FOR UNKNOWN INDICATION
     Dosage: UNK
     Route: 048
  22. ONDANSETRON [Concomitant]
     Indication: PRODUCT USED FOR UNKNOWN INDICATION
     Dosage: UNK
     Route: 048
  23. CARAFATE [Concomitant]
     Indication: PRODUCT USED FOR UNKNOWN INDICATION
     Dosage: UNK
     Route: 048

REACTIONS (6)
  - Haemorrhage [Unknown]
  - Anaemia [Unknown]
  - Mucosal dryness [Unknown]
  - Body temperature increased [Unknown]
  - Oedema peripheral [Unknown]
  - Blood bilirubin increased [Unknown]
